FAERS Safety Report 20392493 (Version 2)
Quarter: 2022Q1

REPORT INFORMATION
  Report Type: Report from Study
  Country: DK (occurrence: DK)
  Receive Date: 20220128
  Receipt Date: 20220203
  Transmission Date: 20220423
  Serious: Yes (Hospitalization)
  Sender: FDA-Public Use
  Company Number: DK-JNJFOC-20220145063

PATIENT
  Age: 13 Year
  Sex: Female
  Weight: 49.6 kg

DRUGS (2)
  1. REMICADE [Suspect]
     Active Substance: INFLIXIMAB
     Indication: Inflammatory bowel disease
     Route: 042
     Dates: start: 20121022
  2. SIMPONI [Concomitant]
     Active Substance: GOLIMUMAB
     Dosage: LAST DOSE PRIOR TO THE EVENT_ 05-DEC-2021
     Dates: start: 20191115

REACTIONS (1)
  - Pouchitis [Recovered/Resolved]

NARRATIVE: CASE EVENT DATE: 20211214
